FAERS Safety Report 5495569-2 (Version None)
Quarter: 2007Q4

REPORT INFORMATION
  Report Type: 
  Country: None (occurrence: None)
  Receive Date: 20071025
  Receipt Date: 20071018
  Transmission Date: 20080405
  Serious: Yes (Hospitalization)
  Sender: FDA-Public Use
  Company Number: PHNU2007DE03483

PATIENT
  Age: 55 Year
  Sex: Female

DRUGS (4)
  1. FEMARA [Suspect]
     Indication: BREAST CANCER
     Route: 048
     Dates: start: 20070601
  2. PHENYTOIN [Suspect]
     Indication: EPILEPSY
     Dates: start: 19870101
  3. VALPROIC ACID [Suspect]
     Indication: EPILEPSY
     Dates: start: 19870101
  4. FRISIUM [Suspect]
     Indication: EPILEPSY
     Dates: start: 19870101

REACTIONS (2)
  - DRUG INTERACTION [None]
  - EPILEPSY [None]
